FAERS Safety Report 24839372 (Version 1)
Quarter: 2025Q1

REPORT INFORMATION
  Report Type: Spontaneous
  Country: CA (occurrence: CA)
  Receive Date: 20250114
  Receipt Date: 20250114
  Transmission Date: 20250409
  Serious: No
  Sender: ALKEM
  Company Number: CA-ALKEM LABORATORIES LIMITED-CA-ALKEM-2024-23330

PATIENT
  Age: 83 Year
  Sex: Female

DRUGS (1)
  1. CAPECITABINE [Suspect]
     Active Substance: CAPECITABINE
     Indication: Oral cavity cancer metastatic
     Dosage: 1500 MILLIGRAM, BID (DAYS 1 TO 14, FOLLOWED BY 1 WEEK OFF)
     Route: 065

REACTIONS (1)
  - Therapy non-responder [Unknown]
